FAERS Safety Report 10081483 (Version 1)
Quarter: 2014Q2

REPORT INFORMATION
  Report Type: Spontaneous
  Country: US (occurrence: None)
  Receive Date: 20140415
  Receipt Date: 20140415
  Transmission Date: 20141212
  Serious: Yes (Hospitalization)
  Sender: FDA-Public Use
  Company Number: None

PATIENT
  Age: 56 Year
  Sex: Female
  Weight: 71 kg

DRUGS (3)
  1. SOFOSBUVIR [Suspect]
     Indication: HEPATITIS C
     Dosage: 400 MG, 1X DAY, PO
     Route: 048
     Dates: start: 20140103
  2. RIBAVIRIN [Suspect]
     Dosage: 1000 MG, 600MG QAM 400MG QPM, PO
     Route: 048
  3. PEGASYS 180 MCG/0.5 ML PFS 4X 0.5 ML KIT [Concomitant]

REACTIONS (1)
  - Coronary artery disease [None]
